FAERS Safety Report 10480227 (Version 2)
Quarter: 2014Q4

REPORT INFORMATION
  Report Type: Spontaneous
  Country: US (occurrence: US)
  Receive Date: 20140929
  Receipt Date: 20141110
  Transmission Date: 20150528
  Serious: No
  Sender: FDA-Public Use
  Company Number: US-009507513-1409USA006022

PATIENT
  Sex: Female
  Weight: 78.46 kg

DRUGS (3)
  1. ALLEGRA [Concomitant]
     Active Substance: FEXOFENADINE HYDROCHLORIDE
  2. NASONEX [Suspect]
     Active Substance: MOMETASONE FUROATE
     Indication: SINUS DISORDER
     Dosage: 2 SPRAYS IN EACH NOSTRIL, QD
     Route: 045
     Dates: start: 2010
  3. SINGULAIR [Concomitant]
     Active Substance: MONTELUKAST SODIUM

REACTIONS (5)
  - Sinus congestion [Not Recovered/Not Resolved]
  - Accidental exposure to product [Unknown]
  - Product quality issue [Unknown]
  - Rhinitis allergic [Unknown]
  - Underdose [Unknown]

NARRATIVE: CASE EVENT DATE: 2011
